FAERS Safety Report 8547986 (Version 2)
Quarter: 2013Q1

REPORT INFORMATION
  Report Type: Report from Study
  Country: DE (occurrence: DE)
  Receive Date: 20120504
  Receipt Date: 20130319
  Transmission Date: 20140127
  Serious: Yes (Hospitalization)
  Sender: FDA-Public Use
  Company Number: DE-ROCHE-1057056

PATIENT
  Age: 53 Year
  Sex: Male
  Weight: 77.6 kg

DRUGS (34)
  1. KEVATRIL [Concomitant]
     Route: 065
     Dates: start: 20110723, end: 20110725
  2. KEVATRIL [Concomitant]
     Route: 065
     Dates: start: 20111112, end: 20111112
  3. TEMODAL [Concomitant]
     Route: 065
     Dates: start: 20120331, end: 20120404
  4. TEMODAL [Concomitant]
     Route: 065
     Dates: start: 20120317, end: 20120323
  5. PANTOZOL [Concomitant]
     Route: 065
     Dates: start: 20120401
  6. MEDISEPTIC (UNK INGREDIENTS) [Concomitant]
     Route: 065
     Dates: start: 20110420, end: 201105
  7. HYABAK [Concomitant]
     Route: 065
     Dates: start: 20110506, end: 20110727
  8. LYRICA [Concomitant]
     Route: 065
     Dates: start: 20110407, end: 20110417
  9. LYRICA [Concomitant]
     Route: 065
     Dates: start: 20110425, end: 20110520
  10. RINGERACETAT [Concomitant]
     Route: 065
     Dates: start: 20120401, end: 20120401
  11. BEVACIZUMAB [Suspect]
     Indication: GLIOBLASTOMA
     Dosage: LAST DOSE PRIOR TO SAE: 18/APR/2012
     Route: 042
  12. TEMOZOLOMIDE [Suspect]
     Indication: GLIOBLASTOMA
     Route: 048
     Dates: start: 20110321
  13. IRINOTECAN [Suspect]
     Indication: GLIOBLASTOMA
     Route: 042
  14. DEXAMETHASON [Concomitant]
     Route: 065
     Dates: start: 20110214
  15. DEXAMETHASON [Concomitant]
     Route: 065
     Dates: start: 20110225, end: 20110228
  16. DEXAMETHASON [Concomitant]
     Route: 065
     Dates: start: 20110225, end: 20110228
  17. DEXAMETHASON [Concomitant]
     Route: 065
     Dates: start: 20110301, end: 20110320
  18. DEXAMETHASON [Concomitant]
     Route: 065
     Dates: start: 20110324, end: 20110326
  19. DEXAMETHASON [Concomitant]
     Route: 065
     Dates: start: 20110327
  20. DEXAMETHASON [Concomitant]
     Route: 065
     Dates: start: 20110331, end: 20110405
  21. DEXAMETHASON [Concomitant]
     Route: 065
     Dates: start: 20110406, end: 20110412
  22. DEXAMETHASON [Concomitant]
     Route: 065
     Dates: start: 20110413
  23. DEXAMETHASON [Concomitant]
     Route: 065
     Dates: start: 20110418
  24. DEXAMETHASON [Concomitant]
     Route: 065
     Dates: start: 20110420, end: 20110424
  25. DEXAMETHASON [Concomitant]
     Route: 065
     Dates: start: 20110425, end: 20110428
  26. DEXAMETHASON [Concomitant]
     Route: 065
     Dates: start: 20110429, end: 20110511
  27. DEXAMETHASON [Concomitant]
     Route: 065
     Dates: start: 20110713, end: 20110715
  28. DEXAMETHASON [Concomitant]
     Route: 065
     Dates: start: 20120401, end: 20120403
  29. DEXAMETHASON [Concomitant]
     Dosage: 3X 40 MG
     Route: 065
     Dates: start: 20120430
  30. PANTOZOL [Concomitant]
     Route: 065
     Dates: start: 20110222
  31. PANTOZOL [Concomitant]
     Route: 065
     Dates: start: 20110413
  32. PREGABALIN [Concomitant]
     Route: 065
     Dates: start: 20110407, end: 201104
  33. PREGABALIN [Concomitant]
     Route: 065
     Dates: start: 20110425, end: 20110520
  34. BOSWELLIA [Concomitant]
     Route: 065
     Dates: start: 20110713

REACTIONS (2)
  - Brain oedema [Recovered/Resolved]
  - Epilepsy [Recovered/Resolved]
